FAERS Safety Report 13300619 (Version 5)
Quarter: 2017Q2

REPORT INFORMATION
  Report Type: Report from Study
  Country: US (occurrence: US)
  Receive Date: 20170307
  Receipt Date: 20170508
  Transmission Date: 20170830
  Serious: Yes (Other)
  Sender: FDA-Public Use
  Company Number: PHEH2014US018529

PATIENT
  Age: 26 Year
  Sex: Female

DRUGS (1)
  1. GILENYA [Suspect]
     Active Substance: FINGOLIMOD HYDROCHLORIDE
     Indication: RELAPSING-REMITTING MULTIPLE SCLEROSIS
     Dosage: UNK
     Route: 048
     Dates: start: 20110301

REACTIONS (11)
  - Hyperphagia [Unknown]
  - Temperature intolerance [Unknown]
  - Premenstrual syndrome [Unknown]
  - Hypoaesthesia [Unknown]
  - Binocular eye movement disorder [Unknown]
  - Fatigue [Unknown]
  - Pain in extremity [Unknown]
  - Viral upper respiratory tract infection [Unknown]
  - Headache [Unknown]
  - Multiple sclerosis [Unknown]
  - Anxiety [Unknown]

NARRATIVE: CASE EVENT DATE: 20170315
